FAERS Safety Report 25365444 (Version 2)
Quarter: 2025Q2

REPORT INFORMATION
  Report Type: Spontaneous
  Country: DE (occurrence: DE)
  Receive Date: 20250527
  Receipt Date: 20250611
  Transmission Date: 20250716
  Serious: No
  Sender: UCB
  Company Number: DE-UCBSA-2025025367

PATIENT
  Sex: Female

DRUGS (2)
  1. NEUPRO [Suspect]
     Active Substance: ROTIGOTINE
     Indication: Restless legs syndrome
     Dosage: 3 MILLIGRAM, ONCE DAILY (QD)
     Route: 062
     Dates: start: 202504
  2. NEUPRO [Suspect]
     Active Substance: ROTIGOTINE
     Dosage: 3 MILLIGRAM, ONCE DAILY (QD)
     Route: 062

REACTIONS (3)
  - Poor quality sleep [Recovered/Resolved]
  - Restless legs syndrome [Recovered/Resolved]
  - Product ineffective [Unknown]

NARRATIVE: CASE EVENT DATE: 20250401
